FAERS Safety Report 8227542-5 (Version None)
Quarter: 2012Q1

REPORT INFORMATION
  Report Type: 
  Country: None (occurrence: None)
  Receive Date: 20120322
  Receipt Date: 20120313
  Transmission Date: 20120608
  Serious: Yes (Death, Life-Threatening)
  Sender: FDA-Public Use
  Company Number: FR-BRISTOL-MYERS SQUIBB COMPANY-16409484

PATIENT
  Age: 68 Year
  Sex: Female

DRUGS (11)
  1. IDARUBICIN HCL [Suspect]
     Indication: ACUTE LEUKAEMIA
     Dates: start: 20111228
  2. AMIODARONE HYDROCHLORIDE [Suspect]
     Route: 042
     Dates: start: 20111230
  3. PIPERACILLIN AND TAZOBACTAM [Suspect]
     Dates: start: 20111228, end: 20120104
  4. LEVOFLOXACIN [Suspect]
     Dates: start: 20111229
  5. FASTURTEC [Suspect]
     Dates: start: 20111228
  6. EMEND [Suspect]
     Dates: start: 20111229
  7. ZYVOX [Suspect]
     Dates: start: 20111230
  8. HYDREA [Suspect]
     Dates: start: 20111226, end: 20111228
  9. VALACYCLOVIR HYDROCHLORIDE [Suspect]
     Dates: start: 20111228
  10. CYTARABINE [Suspect]
     Indication: ACUTE LEUKAEMIA
     Route: 042
     Dates: start: 20111228, end: 20120103
  11. VANCOMYCIN [Suspect]
     Dates: start: 20120105

REACTIONS (5)
  - DERMATITIS BULLOUS [None]
  - RENAL FAILURE ACUTE [None]
  - BONE MARROW FAILURE [None]
  - SEPTIC SHOCK [None]
  - INTESTINAL ISCHAEMIA [None]
